FAERS Safety Report 4899466-2 (Version None)
Quarter: 2006Q1

REPORT INFORMATION
  Report Type: 
  Country: None (occurrence: None)
  Receive Date: 20060118
  Receipt Date: 20050713
  Transmission Date: 20060701
  Serious: No
  Sender: FDA-Public Use
  Company Number: 2005001339

PATIENT
  Age: 66 Year
  Sex: Male
  Weight: 78.4723 kg

DRUGS (10)
  1. TARCEVA [Suspect]
     Indication: BRONCHIOLOALVEOLAR CARCINOMA
     Dosage: 150 MG (QD), ORAL
     Route: 048
  2. WARFARIN SODIUM [Suspect]
  3. CARAFATE [Concomitant]
  4. REGLAN [Concomitant]
  5. PREVACID [Concomitant]
  6. OXYCODONE HCL [Concomitant]
  7. ACETAMINOPHEN [Concomitant]
  8. ADVAIR DISKUS 100/50 [Concomitant]
  9. IPRATROPIUM BROMIDE [Concomitant]
  10. ALBUTEROL [Concomitant]

REACTIONS (6)
  - ANOREXIA [None]
  - CHILLS [None]
  - FATIGUE [None]
  - JUGULAR VEIN THROMBOSIS [None]
  - PYREXIA [None]
  - RASH [None]
